FAERS Safety Report 9254685 (Version 1)
Quarter: 2013Q2

REPORT INFORMATION
  Report Type: Spontaneous
  Country: GB (occurrence: GB)
  Receive Date: 20130425
  Receipt Date: 20130425
  Transmission Date: 20140414
  Serious: Yes (Other)
  Sender: FDA-Public Use
  Company Number: GB-ASTELLAS-2013EU002479

PATIENT
  Age: 76 Year
  Sex: Female
  Weight: 81 kg

DRUGS (6)
  1. VESICARE [Suspect]
     Indication: URGE INCONTINENCE
     Dosage: 5 MG, UNKNOWN/D
     Route: 048
     Dates: start: 20130220
  2. FLECAINIDE [Concomitant]
     Dosage: 50 MG, BID
     Route: 048
     Dates: start: 20110802
  3. CANDESARTAN [Concomitant]
     Dosage: 4 MG, UNKNOWN/D
     Route: 048
     Dates: start: 20111103
  4. ACENOCOUMAROL [Concomitant]
     Dosage: 1 MG, UNKNOWN/D
     Route: 048
     Dates: start: 20111103
  5. SALBUTAMOL [Concomitant]
     Dosage: UNK
     Route: 065
  6. CLENIL MODULITE [Concomitant]
     Dosage: UNK
     Route: 065

REACTIONS (1)
  - Dysuria [Recovered/Resolved]
